FAERS Safety Report 10693032 (Version 1)
Quarter: 2015Q1

REPORT INFORMATION
  Report Type: Spontaneous
  Country: US (occurrence: None)
  Receive Date: 20150105
  Receipt Date: 20150105
  Transmission Date: 20150720
  Serious: Yes (Disabling)
  Sender: FDA-Public Use
  Company Number: None

PATIENT
  Age: 52 Year
  Sex: Male
  Weight: 65.77 kg

DRUGS (4)
  1. LEVAQUIN [Suspect]
     Active Substance: LEVOFLOXACIN
     Indication: URINARY TRACT INFECTION
     Dates: start: 20090301, end: 20090307
  2. LEVAQUIN [Suspect]
     Active Substance: LEVOFLOXACIN
     Indication: SINUSITIS
     Dates: start: 20090301, end: 20090307
  3. AVELOX [Suspect]
     Active Substance: MOXIFLOXACIN HYDROCHLORIDE
     Indication: OROPHARYNGEAL PAIN
     Dates: start: 20070301, end: 20070304
  4. LEVAQUIN [Suspect]
     Active Substance: LEVOFLOXACIN
     Indication: INFLUENZA
     Dates: start: 20090301, end: 20090307

REACTIONS (11)
  - Asthenia [None]
  - Brain neoplasm [None]
  - Fear [None]
  - Toxicity to various agents [None]
  - Discomfort [None]
  - Gait disturbance [None]
  - Fatigue [None]
  - Neuropathy peripheral [None]
  - Vitamin B12 deficiency [None]
  - Muscle spasms [None]
  - Bone pain [None]

NARRATIVE: CASE EVENT DATE: 20070301
